FAERS Safety Report 5546026-6 (Version None)
Quarter: 2007Q4

REPORT INFORMATION
  Report Type: 
  Country: None (occurrence: None)
  Receive Date: 20071211
  Receipt Date: 20071205
  Transmission Date: 20080405
  Serious: Yes (Hospitalization)
  Sender: FDA-Public Use
  Company Number: PHEH2007US15644

PATIENT
  Sex: Female

DRUGS (1)
  1. DIOVAN [Suspect]
     Indication: HYPERTENSION
     Dosage: UNK, UNK

REACTIONS (3)
  - CYSTITIS [None]
  - MASS [None]
  - NEPHROLITHIASIS [None]
